FAERS Safety Report 18132679 (Version 1)
Quarter: 2020Q3

REPORT INFORMATION
  Report Type: Spontaneous
  Country: CN (occurrence: CN)
  Receive Date: 20200811
  Receipt Date: 20200811
  Transmission Date: 20201103
  Serious: Yes (Hospitalization)
  Sender: FDA-Public Use
  Company Number: CN-BAXTER-2020BAX016140

PATIENT
  Age: 33 Year
  Sex: Female
  Weight: 53 kg

DRUGS (3)
  1. SUNCHENG [LOXOPROFEN SODIUM] [Suspect]
     Active Substance: LOXOPROFEN SODIUM
     Indication: SYSTEMIC LUPUS ERYTHEMATOSUS
     Dosage: TABLET
     Route: 048
     Dates: start: 20200717, end: 20200717
  2. ENDOXAN [Suspect]
     Active Substance: CYCLOPHOSPHAMIDE
     Indication: SYSTEMIC LUPUS ERYTHEMATOSUS
     Dosage: CYCLOPHOSPHAMIDE+ 0.9% SODIUM CHLORIDE (250 ML)
     Route: 041
     Dates: start: 20200709, end: 20200710
  3. 0.9% SODIUM CHLORIDE INJECTION [Suspect]
     Active Substance: SODIUM CHLORIDE
     Indication: MEDICATION DILUTION
     Dosage: 0.9% SODIUM CHLORIDE + CYCLOPHOSPHAMIDE (0.4 G)
     Route: 041
     Dates: start: 20200709, end: 20200710

REACTIONS (2)
  - Transaminases increased [Recovering/Resolving]
  - Myelosuppression [Recovering/Resolving]

NARRATIVE: CASE EVENT DATE: 20200717
